FAERS Safety Report 17534888 (Version 1)
Quarter: 2020Q1

REPORT INFORMATION
  Report Type: Spontaneous
  Country: US (occurrence: US)
  Receive Date: 20200312
  Receipt Date: 20200312
  Transmission Date: 20200409
  Serious: No
  Sender: FDA-Public Use
  Company Number: US-SA-2020SA063843

PATIENT
  Age: 76 Year
  Sex: Male

DRUGS (13)
  1. DUPIXENT [Suspect]
     Active Substance: DUPILUMAB
     Indication: DERMATITIS ATOPIC
     Dosage: 600 MG, 1X
     Route: 058
     Dates: start: 20200302, end: 20200302
  2. DIAZEPAM. [Concomitant]
     Active Substance: DIAZEPAM
  3. VALIUM [Concomitant]
     Active Substance: DIAZEPAM
  4. DUPIXENT [Suspect]
     Active Substance: DUPILUMAB
     Dosage: 300 MG, QOW
     Route: 058
     Dates: start: 202003
  5. CLARITIN [GLICLAZIDE] [Concomitant]
     Active Substance: GLICLAZIDE
  6. AMBIEN [Concomitant]
     Active Substance: ZOLPIDEM TARTRATE
  7. VALERIAN ROOT [VALERIANA OFFICINALIS] [Concomitant]
  8. CYCLOBENZAPRINE HCL [Concomitant]
     Active Substance: CYCLOBENZAPRINE HYDROCHLORIDE
  9. SUMATRIPTAN. [Concomitant]
     Active Substance: SUMATRIPTAN
  10. CILOSTAZOL. [Concomitant]
     Active Substance: CILOSTAZOL
  11. ALL DAY ALLERGY [Concomitant]
     Active Substance: CETIRIZINE HYDROCHLORIDE
  12. LEVOTHYROXINE SODIUM. [Concomitant]
     Active Substance: LEVOTHYROXINE SODIUM
  13. METFORMIN ER [Concomitant]
     Active Substance: METFORMIN HYDROCHLORIDE

REACTIONS (1)
  - Influenza [Unknown]

NARRATIVE: CASE EVENT DATE: 20200303
